FAERS Safety Report 22150660 (Version 1)
Quarter: 2023Q1

REPORT INFORMATION
  Report Type: Report from Study
  Country: US (occurrence: US)
  Receive Date: 20230329
  Receipt Date: 20230329
  Transmission Date: 20230417
  Serious: Yes (Hospitalization)
  Sender: FDA-Public Use
  Company Number: US-GLAXOSMITHKLINE-US2020GSK085086

PATIENT

DRUGS (18)
  1. DOSTARLIMAB [Suspect]
     Active Substance: DOSTARLIMAB
     Indication: Endometrial cancer
     Dosage: 500 MG
     Route: 042
     Dates: start: 20200120, end: 20200120
  2. DOSTARLIMAB [Suspect]
     Active Substance: DOSTARLIMAB
     Dosage: 500 MG
     Route: 042
     Dates: start: 20200506, end: 20200506
  3. CARBOPLATIN [Suspect]
     Active Substance: CARBOPLATIN
     Indication: Endometrial cancer
     Dosage: 5 AUC
     Route: 042
     Dates: start: 20200120, end: 20200120
  4. CARBOPLATIN [Suspect]
     Active Substance: CARBOPLATIN
     Dosage: 460 AUC
     Route: 042
     Dates: start: 20200506, end: 20200506
  5. PACLITAXEL [Suspect]
     Active Substance: PACLITAXEL
     Indication: Endometrial cancer
     Dosage: 175 MG/M2
     Route: 042
     Dates: start: 20200120, end: 20200120
  6. PACLITAXEL [Suspect]
     Active Substance: PACLITAXEL
     Dosage: 341 MG/M2
     Route: 042
     Dates: start: 20200506, end: 20200506
  7. PALONOSETRON [Concomitant]
     Active Substance: PALONOSETRON
     Indication: Nausea
     Dosage: 0.25 MG, QD
     Route: 042
     Dates: start: 20200415, end: 20200415
  8. PALONOSETRON [Concomitant]
     Active Substance: PALONOSETRON
     Indication: Vomiting
     Dosage: 0.25 MG, QD
     Route: 042
     Dates: start: 20200506, end: 20200506
  9. FOSAPREPITANT [Concomitant]
     Active Substance: FOSAPREPITANT
     Indication: Nausea
     Dosage: 150 MG, QD
     Route: 042
     Dates: start: 20200415, end: 20200415
  10. FOSAPREPITANT [Concomitant]
     Active Substance: FOSAPREPITANT
     Indication: Vomiting
     Dosage: 150 MG, QD
     Route: 042
     Dates: start: 20200506, end: 20200506
  11. DEXAMETHASONE [Concomitant]
     Active Substance: DEXAMETHASONE
     Indication: Nausea
     Dosage: 20 MG, QD
     Route: 042
     Dates: start: 20200415, end: 20200415
  12. DEXAMETHASONE [Concomitant]
     Active Substance: DEXAMETHASONE
     Indication: Vomiting
     Dosage: 20 MG, QD
     Route: 042
     Dates: start: 20200506, end: 20200506
  13. FAMOTIDINE [Concomitant]
     Active Substance: FAMOTIDINE
     Indication: Nausea
     Dosage: 20 MG, QD
     Route: 042
     Dates: start: 20200415, end: 20200415
  14. FAMOTIDINE [Concomitant]
     Active Substance: FAMOTIDINE
     Indication: Vomiting
     Dosage: 20 MG, QD
     Route: 042
     Dates: start: 20200506, end: 20200506
  15. DIPHENHYDRAMINE [Concomitant]
     Active Substance: DIPHENHYDRAMINE
     Indication: Nausea
     Dosage: 50 MG, QD
     Route: 042
     Dates: start: 20200415, end: 20200415
  16. DIPHENHYDRAMINE [Concomitant]
     Active Substance: DIPHENHYDRAMINE
     Indication: Vomiting
     Dosage: 50 MG, QD
     Route: 042
     Dates: start: 20200506, end: 20200506
  17. IMODIUM [Concomitant]
     Active Substance: LOPERAMIDE HYDROCHLORIDE
     Indication: Diarrhoea
     Dosage: 4 MG, PRN
     Route: 048
     Dates: start: 20200422, end: 20200424
  18. MAGNESIUM SULFATE [Concomitant]
     Active Substance: MAGNESIUM SULFATE
     Indication: Hypomagnesaemia
     Dosage: 4 G, QD
     Route: 042
     Dates: start: 20200506, end: 20200506

REACTIONS (1)
  - Inappropriate antidiuretic hormone secretion [Recovered/Resolved]

NARRATIVE: CASE EVENT DATE: 20200515
